FAERS Safety Report 12175275 (Version 4)
Quarter: 2017Q1

REPORT INFORMATION
  Report Type: Spontaneous
  Country: DE (occurrence: DE)
  Receive Date: 20160314
  Receipt Date: 20170227
  Transmission Date: 20170428
  Serious: Yes (Other)
  Sender: FDA-Public Use
  Company Number: DE-009507513-1603DEU004180

PATIENT
  Age: 62 Year

DRUGS (1)
  1. KEYTRUDA [Suspect]
     Active Substance: PEMBROLIZUMAB
     Indication: BASAL CELL CARCINOMA
     Dosage: 4 CYCLES
     Dates: start: 201411, end: 201501

REACTIONS (4)
  - Metastases to lung [Unknown]
  - Lymphadenopathy mediastinal [Unknown]
  - Off label use [Unknown]
  - Sarcoidosis [Unknown]

NARRATIVE: CASE EVENT DATE: 201501
